FAERS Safety Report 10466256 (Version 1)
Quarter: 2014Q3

REPORT INFORMATION
  Report Type: Spontaneous
  Country: US (occurrence: None)
  Receive Date: 20140918
  Receipt Date: 20140918
  Transmission Date: 20150326
  Serious: Yes (Hospitalization, Other)
  Sender: FDA-Public Use
  Company Number: 2010S1004631

PATIENT
  Age: 56 Year
  Sex: Male

DRUGS (9)
  1. VIAGRA [Concomitant]
     Active Substance: SILDENAFIL CITRATE
  2. LESCOL (FLUVASTATIN SODIUM) [Concomitant]
  3. LIPITOR [Concomitant]
     Active Substance: ATORVASTATIN CALCIUM
  4. MAXZIDE (HYDROCHLOROTHIAZIDE, TRIAMTERENE) [Concomitant]
  5. AVALIDE (HYDROCHLOROTHIAZIDE, IRBESARTAN) [Concomitant]
  6. TOPROL (METOPROLOL SUCCINATE) [Concomitant]
  7. PHOSPHO-SODA [Suspect]
     Active Substance: SODIUM PHOSPHATE, DIBASIC\SODIUM PHOSPHATE, MONOBASIC
     Indication: COLONOSCOPY
     Route: 048
     Dates: start: 20051221, end: 20051221
  8. DULCOLAX [Suspect]
     Active Substance: BISACODYL OR DOCUSATE SODIUM
     Indication: COLONOSCOPY
     Dosage: 4 DOSAGE FORMS, 2 IN 1 DAYS, ORAL
     Dates: start: 20051221, end: 20051221
  9. SULAR (NISOLDIPINE) [Concomitant]

REACTIONS (9)
  - Injury [None]
  - Joint swelling [None]
  - Haemorrhoids [None]
  - Abdominal distension [None]
  - Diarrhoea [None]
  - Dehydration [None]
  - Renal failure chronic [None]
  - Asthenia [None]
  - Anaemia [None]

NARRATIVE: CASE EVENT DATE: 200601
